FAERS Safety Report 5306557-0 (Version None)
Quarter: 2007Q2

REPORT INFORMATION
  Report Type: 
  Country: None (occurrence: None)
  Receive Date: 20070424
  Receipt Date: 20070413
  Transmission Date: 20071010
  Serious: Yes (Other)
  Sender: FDA-Public Use
  Company Number: SG-PFIZER INC-2007029738

PATIENT
  Age: 24 Year
  Sex: Female

DRUGS (1)
  1. PHENYTOIN [Suspect]
     Route: 048
     Dates: start: 20060614, end: 20060711

REACTIONS (3)
  - LEUKOPENIA [None]
  - LIVER FUNCTION TEST ABNORMAL [None]
  - RASH [None]
